FAERS Safety Report 23631656 (Version 2)
Quarter: 2024Q1

REPORT INFORMATION
  Report Type: Spontaneous
  Country: JP (occurrence: JP)
  Receive Date: 20240314
  Receipt Date: 20240315
  Transmission Date: 20240409
  Serious: Yes (Death, Other)
  Sender: FDA-Public Use
  Company Number: JP-PFIZER INC-PV202400034144

PATIENT
  Age: 73 Year
  Sex: Female

DRUGS (2)
  1. TOFACITINIB CITRATE [Suspect]
     Active Substance: TOFACITINIB CITRATE
     Indication: Dermatomyositis
     Dosage: UNK
  2. CYCLOPHOSPHAMIDE [Concomitant]
     Active Substance: CYCLOPHOSPHAMIDE
     Dosage: UNK

REACTIONS (7)
  - Cytomegalovirus infection reactivation [Fatal]
  - Cytopenia [Unknown]
  - Angina pectoris [Unknown]
  - Pneumothorax [Unknown]
  - Pneumomediastinum [Unknown]
  - Off label use [Unknown]
  - Drug ineffective for unapproved indication [Unknown]
